FAERS Safety Report 24641203 (Version 1)
Quarter: 2024Q4

REPORT INFORMATION
  Report Type: Spontaneous
  Country: JP (occurrence: JP)
  Receive Date: 20241120
  Receipt Date: 20241120
  Transmission Date: 20250115
  Serious: Yes (Death, Other)
  Sender: HELSINN HEALTHCARE
  Company Number: JP-HBP-2024JP031415

PATIENT
  Age: 62 Year
  Sex: Female

DRUGS (10)
  1. PALONOSETRON HYDROCHLORIDE [Suspect]
     Active Substance: PALONOSETRON HYDROCHLORIDE
     Indication: Prophylaxis of nausea and vomiting
     Dosage: 0.75 MILLIGRAM, QD
     Route: 041
     Dates: start: 20241017, end: 20241017
  2. PALONOSETRON HYDROCHLORIDE [Suspect]
     Active Substance: PALONOSETRON HYDROCHLORIDE
     Dosage: 0.75 MILLIGRAM, QD
     Route: 041
     Dates: start: 20241024, end: 20241025
  3. FOSNETUPITANT CHLORIDE HYDROCHLORIDE [Suspect]
     Active Substance: FOSNETUPITANT CHLORIDE HYDROCHLORIDE
     Indication: Prophylaxis of nausea and vomiting
     Dosage: 235 MILLIGRAM, QD
     Route: 041
     Dates: start: 20241017, end: 20241017
  4. FOSNETUPITANT CHLORIDE HYDROCHLORIDE [Suspect]
     Active Substance: FOSNETUPITANT CHLORIDE HYDROCHLORIDE
     Dosage: 235 MILLIGRAM, QD
     Route: 041
     Dates: start: 20241024, end: 20241025
  5. DEXAMETHASONE SODIUM PHOSPHATE [Suspect]
     Active Substance: DEXAMETHASONE SODIUM PHOSPHATE
     Indication: Prophylaxis of nausea and vomiting
     Dosage: UNK, UNKNOWN
     Route: 041
     Dates: start: 20241017, end: 20241017
  6. DEXAMETHASONE SODIUM PHOSPHATE [Suspect]
     Active Substance: DEXAMETHASONE SODIUM PHOSPHATE
     Dosage: UNK, UNKNOWN
     Route: 041
     Dates: start: 20241024, end: 20241025
  7. PACLITAXEL [Suspect]
     Active Substance: PACLITAXEL
     Indication: Cervix carcinoma
     Dosage: 199 MILLIGRAM, QD
     Route: 041
     Dates: start: 20241017, end: 20241017
  8. CISPLATIN [Suspect]
     Active Substance: CISPLATIN
     Indication: Cervix carcinoma
     Dosage: 59 MILLIGRAM, QD
     Route: 041
     Dates: start: 20241017, end: 20241017
  9. PEMBROLIZUMAB [Suspect]
     Active Substance: PEMBROLIZUMAB
     Indication: Cervix carcinoma
     Dosage: 200 MILLIGRAM, QD
     Route: 041
     Dates: start: 20241017, end: 20241017
  10. BEVACIZUMAB [Suspect]
     Active Substance: BEVACIZUMAB
     Indication: Cervix carcinoma
     Dosage: 693 MILLIGRAM, QD
     Route: 041
     Dates: start: 20241017, end: 20241017

REACTIONS (3)
  - Gastrointestinal perforation [Fatal]
  - Inappropriate schedule of product administration [Unknown]
  - Diarrhoea [Unknown]

NARRATIVE: CASE EVENT DATE: 20241001
